FAERS Safety Report 4382200-2 (Version None)
Quarter: 2004Q2

REPORT INFORMATION
  Report Type: 
  Country: None (occurrence: None)
  Receive Date: 20040618
  Receipt Date: 20040618
  Transmission Date: 20050107
  Serious: No
  Sender: FDA-Public Use
  Company Number: None

PATIENT
  Age: 57 Year
  Sex: Male
  Weight: 92.9874 kg

DRUGS (6)
  1. CYPHER SIROLIMUS-ELUTING CORDIS/JOHNSON + [Suspect]
     Indication: CORONARY ARTERY DISEASE
     Dates: start: 20040513, end: 20040513
  2. LIPITOR [Concomitant]
  3. PLAVIX [Concomitant]
  4. PERSANTHIUM [Concomitant]
  5. CARDIZEM [Concomitant]
  6. ZETIA [Concomitant]

REACTIONS (2)
  - HYPERSENSITIVITY [None]
  - SERUM SICKNESS [None]
